FAERS Safety Report 11253816 (Version 1)
Quarter: 2015Q3

REPORT INFORMATION
  Report Type: Report from Study
  Country: CH (occurrence: CH)
  Receive Date: 20150709
  Receipt Date: 20150709
  Transmission Date: 20151125
  Serious: Yes (Death, Hospitalization, Other)
  Sender: FDA-Public Use
  Company Number: CH-ACTELION-A-CH2015-119427

PATIENT
  Age: 83 Year
  Sex: Male
  Weight: 67 kg

DRUGS (1)
  1. TRACLEER [Suspect]
     Active Substance: BOSENTAN
     Indication: SCLERODERMA ASSOCIATED DIGITAL ULCER
     Dosage: 125 MG, BID
     Route: 048
     Dates: start: 20120823

REACTIONS (12)
  - Polyserositis [Fatal]
  - Pulmonary hypertension [Unknown]
  - Blood alkaline phosphatase increased [Unknown]
  - Gastric perforation [Fatal]
  - Multi-organ failure [Fatal]
  - Aspartate aminotransferase increased [Unknown]
  - Laparotomy [Unknown]
  - Dyspnoea [Unknown]
  - Pleural effusion [Fatal]
  - Myopathy [Unknown]
  - Systemic sclerosis [Fatal]
  - Alanine aminotransferase increased [Unknown]

NARRATIVE: CASE EVENT DATE: 20150324
